FAERS Safety Report 5341107-4 (Version None)
Quarter: 2007Q2

REPORT INFORMATION
  Report Type: 
  Country: None (occurrence: None)
  Receive Date: 20070405
  Receipt Date: 20061031
  Transmission Date: 20071010
  Serious: Yes (Hospitalization)
  Sender: FDA-Public Use
  Company Number: 2006-06266

PATIENT
  Age: 40 Year
  Sex: Female

DRUGS (1)
  1. FERRLECIT [Suspect]
     Indication: DRUG USE FOR UNKNOWN INDICATION
     Dosage: 4ML UNDILUTED IVP OVER-20MIN; INTRAVENOUS
     Route: 042
     Dates: start: 20061024, end: 20061024

REACTIONS (8)
  - ANAPHYLACTIC SHOCK [None]
  - APHASIA [None]
  - FLUSHING [None]
  - NAUSEA [None]
  - PHARYNGEAL OEDEMA [None]
  - SWELLING FACE [None]
  - SWOLLEN TONGUE [None]
  - VOMITING [None]
